FAERS Safety Report 4372219-X (Version None)
Quarter: 2004Q2

REPORT INFORMATION
  Report Type: 
  Country: None (occurrence: None)
  Receive Date: 20040602
  Receipt Date: 20040525
  Transmission Date: 20050107
  Serious: Yes (Disabling)
  Sender: FDA-Public Use
  Company Number: 2004UW10928

PATIENT

DRUGS (2)
  1. SEROQUEL [Suspect]
     Dosage: 150 MG QD PO
     Route: 048
  2. SEROQUEL [Suspect]
     Dosage: 100 MG QD PO
     Route: 048
     Dates: start: 20040101

REACTIONS (1)
  - MICTURITION URGENCY [None]
